FAERS Safety Report 24794710 (Version 1)
Quarter: 2024Q4

REPORT INFORMATION
  Report Type: Spontaneous
  Country: US (occurrence: None)
  Receive Date: 20241230
  Receipt Date: 20241230
  Transmission Date: 20250115
  Serious: Yes (Hospitalization)
  Sender: Public
  Company Number: None

PATIENT
  Age: 71 Year
  Sex: Male
  Weight: 96.34 kg

DRUGS (13)
  1. TACROLIMUS [Suspect]
     Active Substance: TACROLIMUS
     Indication: Heart transplant
     Dosage: 1 MG TWICE A DAY ORAL ?
     Route: 048
     Dates: start: 20191101
  2. MYCOPHENOLATE MOFETIL [Suspect]
     Active Substance: MYCOPHENOLATE MOFETIL
     Indication: Heart transplant
     Dosage: 1000 MG TWICE A DAY ORAL?
     Route: 048
     Dates: start: 20191101
  3. AMLODIPINE [Concomitant]
     Active Substance: AMLODIPINE BESYLATE
     Dates: start: 20241113
  4. sodium chloride 7 % nebulization solution [Concomitant]
     Dates: start: 20241118
  5. EZETIMIBE [Concomitant]
     Active Substance: EZETIMIBE
     Dates: start: 20220908
  6. multivitamins tablet [Concomitant]
     Dates: start: 20220221
  7. ROSUVASTATIN [Concomitant]
     Active Substance: ROSUVASTATIN
     Dates: start: 20220516
  8. vitamin C 500 mg tablet [Concomitant]
     Dates: start: 20220221
  9. vitamin E 400 IU capsule [Concomitant]
     Dates: start: 20230118
  10. albuterol 0.083 % inhalation solution [Concomitant]
     Dates: start: 20241118
  11. ELIQUIS [Concomitant]
     Active Substance: APIXABAN
     Dates: start: 20241113, end: 20241220
  12. calcium citrate with vitamin D3 tablet [Concomitant]
     Dates: start: 20230511
  13. tobramycin 300 mg/5 mL in 0.225 % sodium chloride for nebulization [Concomitant]
     Dates: start: 20240904

REACTIONS (1)
  - Pneumonia [None]

NARRATIVE: CASE EVENT DATE: 20241124
